FAERS Safety Report 4896048-3 (Version None)
Quarter: 2005Q4

REPORT INFORMATION
  Report Type: 
  Country: None (occurrence: None)
  Receive Date: 20051220
  Receipt Date: 20050520
  Transmission Date: 20060501
  Serious: Yes (Other)
  Sender: FDA-Public Use
  Company Number: US134828

PATIENT
  Age: 59 Year
  Sex: Female

DRUGS (4)
  1. ENBREL [Suspect]
     Indication: RHEUMATOID ARTHRITIS
     Dosage: 25 MG, 2 IN 1 WEEKS, SC; 50 MG, 1 IN 1 WEEKS, SC
     Route: 058
     Dates: start: 20030701, end: 20050401
  2. ENBREL [Suspect]
     Indication: RHEUMATOID ARTHRITIS
     Dosage: 25 MG, 2 IN 1 WEEKS, SC; 50 MG, 1 IN 1 WEEKS, SC
     Route: 058
     Dates: start: 20050401
  3. ANTIDEPRESSANT NOS [Concomitant]
  4. PANTOPRAZOLE SODIUM [Concomitant]

REACTIONS (3)
  - ASTHENIA [None]
  - OPTIC NEURITIS [None]
  - PAIN IN EXTREMITY [None]
